FAERS Safety Report 13995490 (Version 1)
Quarter: 2017Q3

REPORT INFORMATION
  Report Type: Spontaneous
  Country: AR (occurrence: AR)
  Receive Date: 20170921
  Receipt Date: 20170921
  Transmission Date: 20171128
  Serious: Yes (Other)
  Sender: FDA-Public Use
  Company Number: AR-NOVOPROD-563675

PATIENT
  Age: 68 Year
  Sex: Female

DRUGS (4)
  1. METFORMIN [Concomitant]
     Active Substance: METFORMIN HYDROCHLORIDE
     Indication: TYPE 2 DIABETES MELLITUS
     Dosage: 2 PER DAY
     Route: 065
  2. VICTOZA [Suspect]
     Active Substance: LIRAGLUTIDE
     Indication: PRODUCT USED FOR UNKNOWN INDICATION
     Dosage: 1.8 MG, QD
     Route: 065
     Dates: start: 2014, end: 201709
  3. GLICLAZIDE [Concomitant]
     Active Substance: GLICLAZIDE
     Indication: TYPE 2 DIABETES MELLITUS
     Dosage: 1 PER DAY
     Route: 065
  4. VALSARTAN. [Concomitant]
     Active Substance: VALSARTAN
     Indication: HYPERTENSION
     Dosage: UNK
     Route: 065

REACTIONS (3)
  - Polyp [Unknown]
  - Off label use [Unknown]
  - Adenocarcinoma [Unknown]

NARRATIVE: CASE EVENT DATE: 2014
